FAERS Safety Report 17176606 (Version 1)
Quarter: 2019Q4

REPORT INFORMATION
  Report Type: Spontaneous
  Country: DE (occurrence: DE)
  Receive Date: 20191219
  Receipt Date: 20191219
  Transmission Date: 20200122
  Serious: Yes (Death, Life-Threatening, Hospitalization, Other)
  Sender: FDA-Public Use
  Company Number: DE-BRISTOL-MYERS SQUIBB COMPANY-BMS-2019-118437

PATIENT
  Sex: Male

DRUGS (2)
  1. NIVOLUMAB [Suspect]
     Active Substance: NIVOLUMAB
     Indication: UROGENITAL DISORDER
     Dosage: UNK
     Route: 065
     Dates: start: 20191030
  2. IPILIMUMAB [Suspect]
     Active Substance: IPILIMUMAB
     Indication: UROGENITAL DISORDER
     Dosage: UNK
     Route: 065
     Dates: start: 20191030

REACTIONS (3)
  - Immune-mediated myositis [Not Recovered/Not Resolved]
  - Sepsis [Fatal]
  - Intentional product use issue [Unknown]

NARRATIVE: CASE EVENT DATE: 20191030
